FAERS Safety Report 5286203-5 (Version None)
Quarter: 2007Q2

REPORT INFORMATION
  Report Type: 
  Country: None (occurrence: None)
  Receive Date: 20070403
  Receipt Date: 20070403
  Transmission Date: 20071010
  Serious: Yes (Hospitalization)
  Sender: FDA-Public Use
  Company Number: None

PATIENT
  Age: 54 Year
  Weight: 86 kg

DRUGS (1)
  1. DIVALPROEX SODIUM [Suspect]
     Indication: EPILEPSY
     Dosage: 500MG QID PO
     Route: 048
     Dates: start: 20030101, end: 20060814

REACTIONS (3)
  - CONTUSION [None]
  - FALL [None]
  - PLATELET COUNT DECREASED [None]
